FAERS Safety Report 5179163-9 (Version None)
Quarter: 2006Q4

REPORT INFORMATION
  Report Type: 
  Country: None (occurrence: None)
  Receive Date: 20061219
  Receipt Date: 20061208
  Transmission Date: 20070319
  Serious: Yes (Other)
  Sender: FDA-Public Use
  Company Number: US-SANOFI-SYNTHELABO-A03200607373

PATIENT
  Sex: Female

DRUGS (14)
  1. AMBIEN [Suspect]
     Indication: INSOMNIA
     Dosage: TOOK 12.5MG AT 10:00PM + ANOTHER 12.5MG AT 3:00AM.
     Route: 048
     Dates: start: 20061202
  2. AMBIEN [Suspect]
     Route: 048
  3. PROTONIX [Concomitant]
     Dosage: UNK
     Route: 048
  4. ZOFRAN [Concomitant]
     Dosage: UNK
     Route: 065
  5. WELLBUTRIN [Concomitant]
     Dosage: UNK
     Route: 048
  6. PARLODIL [Concomitant]
     Dosage: UNK
     Route: 065
  7. TRAZODONE HCL [Concomitant]
     Dosage: UNK
     Route: 065
  8. ESTRATEST [Concomitant]
     Dosage: UNK
     Route: 065
  9. ACYCLOVIR [Concomitant]
     Dosage: UNK
     Route: 065
  10. ACTONEL [Concomitant]
     Dosage: UNK
     Route: 048
  11. EFFEXOR [Concomitant]
     Dosage: UNK
     Route: 048
  12. PHENERGAN [Concomitant]
     Dosage: UNK
     Route: 048
  13. REGLAN [Concomitant]
     Dosage: UNK
     Route: 048
  14. DILAUDID [Concomitant]
     Dosage: UNK
     Route: 048

REACTIONS (5)
  - AMNESIA [None]
  - DRUG INEFFECTIVE [None]
  - DRUG SCREEN POSITIVE [None]
  - IMPAIRED DRIVING ABILITY [None]
  - OVERDOSE [None]
